FAERS Safety Report 23997050 (Version 1)
Quarter: 2024Q2

REPORT INFORMATION
  Report Type: Spontaneous
  Country: EG (occurrence: EG)
  Receive Date: 20240621
  Receipt Date: 20240621
  Transmission Date: 20240717
  Serious: Yes (Other)
  Sender: FDA-Public Use
  Company Number: EG-NOVOPROD-1237554

PATIENT
  Age: 852 Month
  Sex: Female

DRUGS (3)
  1. INSULIN HUMAN [Suspect]
     Active Substance: INSULIN HUMAN
     Dosage: 40 IU, QD(15 U MORNING, 25 U NIGHT DURING HIGH HBA1C)
     Route: 058
  2. INSULIN HUMAN [Suspect]
     Active Substance: INSULIN HUMAN
     Indication: Diabetes mellitus
     Dosage: 50 IU, QD
     Route: 058
  3. INSULIN HUMAN [Suspect]
     Active Substance: INSULIN HUMAN
     Dosage: 20 IU, QD(20 U/NIGHT)
     Route: 058

REACTIONS (2)
  - Spinal cord disorder [Recovered/Resolved]
  - Hyperglycaemia [Not Recovered/Not Resolved]
